FAERS Safety Report 9305411 (Version 1)
Quarter: 2013Q2

REPORT INFORMATION
  Report Type: Spontaneous
  Country: NL (occurrence: NL)
  Receive Date: 20130523
  Receipt Date: 20130523
  Transmission Date: 20140414
  Serious: Yes (Other)
  Sender: FDA-Public Use
  Company Number: NL-BRISTOL-MYERS SQUIBB COMPANY-18920645

PATIENT
  Sex: 0

DRUGS (1)
  1. ABILIFY [Suspect]

REACTIONS (2)
  - Psychotic disorder [Unknown]
  - Suicide attempt [Unknown]
